FAERS Safety Report 14999236 (Version 1)
Quarter: 2018Q2

REPORT INFORMATION
  Report Type: Spontaneous
  Country: DE (occurrence: DE)
  Receive Date: 20180612
  Receipt Date: 20180612
  Transmission Date: 20180711
  Serious: Yes (Hospitalization)
  Sender: FDA-Public Use
  Company Number: DE-TEVA-2018-DE-904082

PATIENT
  Age: 78 Year
  Sex: Male

DRUGS (11)
  1. DOCETAXEL. [Suspect]
     Active Substance: DOCETAXEL
     Dosage: NK
     Route: 065
  2. HYDROMORPHON [Concomitant]
     Active Substance: HYDROMORPHONE
     Dosage: 8 MG, 1-1-1-0
     Route: 065
  3. MAGNESIUM [Concomitant]
     Active Substance: MAGNESIUM
     Dosage: 400 MG, 0-1-0-0
     Route: 065
  4. ZOLEDRONSAEURE BETA 4 MG/5 ML KONZENTRAT ZUR HERSTELLUNG EINER INFUSIO [Suspect]
     Active Substance: ZOLEDRONIC ACID
     Dosage: NK
     Route: 065
  5. MACROGOL [Concomitant]
     Active Substance: POLYETHYLENE GLYCOLS
     Dosage: 1-0-1-0
     Route: 065
  6. AMITRIPTYLIN [Concomitant]
     Active Substance: AMITRIPTYLINE
     Dosage: 25 MG, 0-0-1-0
     Route: 065
  7. TORASEMID [Concomitant]
     Active Substance: TORSEMIDE
     Dosage: 10 MG, 1-0-0-0
     Route: 065
  8. METOPROLOL. [Concomitant]
     Active Substance: METOPROLOL
     Dosage: 47.5 MG, 1-0-0-0
     Route: 065
  9. PREDNISOLON [Concomitant]
     Active Substance: PREDNISOLONE
     Dosage: 5 MG, 1-0-1-0
     Route: 065
  10. TRENANTONE [Suspect]
     Active Substance: LEUPROLIDE ACETATE
     Dosage: NK
     Route: 065
  11. PANTOPRAZOL [Concomitant]
     Active Substance: PANTOPRAZOLE SODIUM
     Dosage: 20 MG, 0-0-1-0
     Route: 065

REACTIONS (4)
  - Circulatory collapse [Unknown]
  - Dehydration [Unknown]
  - Chills [Unknown]
  - Pyrexia [Unknown]
